FAERS Safety Report 12301379 (Version 1)
Quarter: 2016Q2

REPORT INFORMATION
  Report Type: Spontaneous
  Country: FR (occurrence: FR)
  Receive Date: 20160425
  Receipt Date: 20160425
  Transmission Date: 20160815
  Serious: Yes (Hospitalization)
  Sender: FDA-Public Use
  Company Number: FR-TEVA-652983ISR

PATIENT
  Age: 25 Year
  Sex: Female

DRUGS (5)
  1. LEELOO 0.1 MG/0.02 MG [Suspect]
     Active Substance: ETHINYL ESTRADIOL\LEVONORGESTREL
     Indication: CHEMICAL CONTRACEPTION
     Dosage: 1 DOSAGE FORMS DAILY;
     Route: 048
  2. ADVAGRAF [Suspect]
     Active Substance: TACROLIMUS
     Indication: RENAL TRANSPLANT
     Dosage: 7 MILLIGRAM DAILY;
     Route: 048
  3. LEVOTHYROX 200 MCG [Suspect]
     Active Substance: LEVOTHYROXINE
     Indication: HYPOTHYROIDISM
     Dosage: 1 DOSAGE FORMS DAILY;
  4. BACTRIM [Suspect]
     Active Substance: SULFAMETHOXAZOLE\TRIMETHOPRIM
     Indication: INFECTION PROPHYLAXIS
     Dosage: .4286 DOSAGE FORMS DAILY;
     Route: 048
  5. CELLCEPT [Suspect]
     Active Substance: MYCOPHENOLATE MOFETIL\MYCOPHENOLATE MOFETIL HYDROCHLORIDE
     Indication: RENAL TRANSPLANT
     Dosage: 2 DOSAGE FORMS DAILY;
     Route: 048

REACTIONS (2)
  - Post lumbar puncture syndrome [Not Recovered/Not Resolved]
  - Intracranial pressure increased [Unknown]

NARRATIVE: CASE EVENT DATE: 20160304
